FAERS Safety Report 23943444 (Version 1)
Quarter: 2024Q2

REPORT INFORMATION
  Report Type: Report from Study
  Country: GR (occurrence: GR)
  Receive Date: 20240605
  Receipt Date: 20240605
  Transmission Date: 20240716
  Serious: Yes (Hospitalization, Other)
  Sender: FDA-Public Use
  Company Number: GR-ABBVIE-5774303

PATIENT
  Age: 77 Year
  Sex: Female
  Weight: 75 kg

DRUGS (5)
  1. CARBIDOPA\LEVODOPA [Suspect]
     Active Substance: CARBIDOPA\LEVODOPA
     Indication: Parkinson^s disease
     Dosage: MORNING DOSE: 3.0ML; CONTINUOUS RATE: 1.8ML/H; EXTRA DOSE: 0.9ML (24-HOURS ADMINISTRATION)
     Route: 050
     Dates: start: 20151013
  2. CARBIDOPA\LEVODOPA [Suspect]
     Active Substance: CARBIDOPA\LEVODOPA
     Dosage: MORNING DOSE: 3.0ML; CONTINUOUS RATE: 4.1ML/H; EXTRA DOSE: 0.9ML (24-HOURS ADMINISTRATION)
     Route: 050
  3. CARBIDOPA\LEVODOPA [Suspect]
     Active Substance: CARBIDOPA\LEVODOPA
     Dosage: MORNING DOSE: 3.0ML; CONTINUOUS RATE: 3.8ML/H; EXTRA DOSE: 0.9ML (24-HOURS ADMINISTRATION)
     Route: 050
  4. KEPPRA [Concomitant]
     Active Substance: LEVETIRACETAM
     Indication: Seizure
     Route: 048
     Dates: start: 20240530
  5. FOLIC ACID [Concomitant]
     Active Substance: FOLIC ACID
     Indication: Vitamin B12 deficiency
     Route: 048

REACTIONS (17)
  - Vomiting [Recovered/Resolved]
  - Syncope [Unknown]
  - Seizure [Recovered/Resolved]
  - Hyperkinesia [Unknown]
  - Abdominal pain [Not Recovered/Not Resolved]
  - Drug ineffective [Unknown]
  - Feeding disorder [Unknown]
  - Motor dysfunction [Not Recovered/Not Resolved]
  - Seizure [Recovered/Resolved]
  - Dizziness [Unknown]
  - Haematocrit decreased [Recovering/Resolving]
  - Disorientation [Unknown]
  - Bruxism [Unknown]
  - Vitamin B12 deficiency [Not Recovered/Not Resolved]
  - Seizure [Unknown]
  - Dyspnoea [Unknown]
  - Pupillary deformity [Unknown]

NARRATIVE: CASE EVENT DATE: 20240501
